FAERS Safety Report 9269692 (Version 1)
Quarter: 2013Q2

REPORT INFORMATION
  Report Type: Spontaneous
  Country: US (occurrence: US)
  Receive Date: 20130503
  Receipt Date: 20130503
  Transmission Date: 20140414
  Serious: Yes (Other)
  Sender: FDA-Public Use
  Company Number: US-BRISTOL-MYERS SQUIBB COMPANY-18837161

PATIENT
  Age: 74 Year
  Sex: Female

DRUGS (4)
  1. BYETTA [Suspect]
     Indication: DIABETES MELLITUS
  2. AVANDIA [Concomitant]
  3. ACTOS [Concomitant]
     Indication: BLOOD CHOLESTEROL
  4. LANTUS [Concomitant]

REACTIONS (1)
  - Malignant melanoma [Unknown]
